FAERS Safety Report 14980378 (Version 4)
Quarter: 2019Q1

REPORT INFORMATION
  Report Type: Report from Study
  Country: JP (occurrence: JP)
  Receive Date: 20180606
  Receipt Date: 20190319
  Transmission Date: 20190417
  Serious: Yes (Death, Hospitalization, Other)
  Sender: FDA-Public Use
  Company Number: JP-BRISTOL-MYERS SQUIBB COMPANY-BMS-2017-078509

PATIENT
  Age: 82 Year
  Sex: Male
  Weight: 60 kg

DRUGS (2)
  1. NIVOLUMAB [Suspect]
     Active Substance: NIVOLUMAB
     Indication: PRODUCT USED FOR UNKNOWN INDICATION
     Dosage: UNK
     Route: 041
     Dates: start: 2016
  2. NIVOLUMAB [Suspect]
     Active Substance: NIVOLUMAB
     Indication: MALIGNANT MELANOMA
     Dosage: 2 MG/KG, UNK
     Route: 041
     Dates: start: 20160121, end: 20160324

REACTIONS (12)
  - Malaise [Not Recovered/Not Resolved]
  - Dementia [Unknown]
  - Rash [Recovering/Resolving]
  - Abdominal pain [Recovering/Resolving]
  - Malignant neoplasm progression [Fatal]
  - Amnesia [Unknown]
  - Decreased appetite [Recovering/Resolving]
  - Somnolence [Unknown]
  - Cognitive disorder [Not Recovered/Not Resolved]
  - Pyrexia [Recovering/Resolving]
  - Agitation [Unknown]
  - Prescribed underdose [Unknown]

NARRATIVE: CASE EVENT DATE: 20160121
